FAERS Safety Report 11145441 (Version 1)
Quarter: 2015Q2

REPORT INFORMATION
  Report Type: Spontaneous
  Country: US (occurrence: None)
  Receive Date: 20150526
  Receipt Date: 20150526
  Transmission Date: 20150821
  Serious: Yes (Hospitalization)
  Sender: FDA-Public Use
  Company Number: None

PATIENT
  Age: 29 Year
  Sex: Male
  Weight: 72.58 kg

DRUGS (2)
  1. PRISTIQ EXTENDED RELEASE [Suspect]
     Active Substance: DESVENLAFAXINE SUCCINATE
     Indication: DEPRESSION
     Route: 048
     Dates: start: 20150507, end: 20150507
  2. IBUPROFEN. [Suspect]
     Active Substance: IBUPROFEN

REACTIONS (9)
  - Headache [None]
  - Restlessness [None]
  - Amnesia [None]
  - Irritability [None]
  - Fall [None]
  - Confusional state [None]
  - Serotonin syndrome [None]
  - Hypertension [None]
  - Muscle twitching [None]

NARRATIVE: CASE EVENT DATE: 20150507
